FAERS Safety Report 21994675 (Version 3)
Quarter: 2023Q1

REPORT INFORMATION
  Report Type: Spontaneous
  Country: US (occurrence: US)
  Receive Date: 20230215
  Receipt Date: 20230315
  Transmission Date: 20230417
  Serious: Yes (Other)
  Sender: FDA-Public Use
  Company Number: US-PFIZER INC-PV202300027932

PATIENT
  Sex: Male

DRUGS (13)
  1. DACARBAZINE [Suspect]
     Active Substance: DACARBAZINE
     Dosage: UNK
     Dates: start: 20221013
  2. DOXORUBICIN HYDROCHLORIDE [Suspect]
     Active Substance: DOXORUBICIN HYDROCHLORIDE
     Dosage: UNK
     Dates: start: 20221013
  3. ADCETRIS [Suspect]
     Active Substance: BRENTUXIMAB VEDOTIN
     Indication: Hodgkin^s disease
     Dosage: 1.2 MG/KG (1.2 MG/KG EVERY 14 DAYS)
     Dates: start: 20221013, end: 20221031
  4. VINBLASTINE [Suspect]
     Active Substance: VINBLASTINE
     Dosage: UNK
     Dates: start: 20221013
  5. NEULASTA [Concomitant]
     Active Substance: PEGFILGRASTIM
     Dosage: UNK
  6. PALONOSETRON [Concomitant]
     Active Substance: PALONOSETRON
     Dosage: UNK
  7. CILGAVIMAB [Concomitant]
     Active Substance: CILGAVIMAB
     Dosage: UNK
  8. TIXAGEVIMAB [Concomitant]
     Active Substance: TIXAGEVIMAB
     Dosage: UNK
  9. DEXAMETHASONE [Concomitant]
     Active Substance: DEXAMETHASONE
     Dosage: UNK
  10. PREDNISONE [Concomitant]
     Active Substance: PREDNISONE
     Dosage: UNK
  11. FAMOTIDINE [Concomitant]
     Active Substance: FAMOTIDINE
     Dosage: UNK
  12. ONDANSETRON [Concomitant]
     Active Substance: ONDANSETRON
     Dosage: UNK
  13. BETAINE [Concomitant]
     Active Substance: BETAINE
     Dosage: UNK

REACTIONS (8)
  - Meningitis aseptic [Recovered/Resolved]
  - Magnetic resonance imaging abnormal [Unknown]
  - Eye pain [Unknown]
  - Headache [Unknown]
  - Vision blurred [Unknown]
  - Muscular weakness [Unknown]
  - Dysarthria [Unknown]
  - White blood cell count abnormal [Recovering/Resolving]

NARRATIVE: CASE EVENT DATE: 20221030
